FAERS Safety Report 4767652-8 (Version None)
Quarter: 2005Q3

REPORT INFORMATION
  Report Type: 
  Country: None (occurrence: None)
  Receive Date: 20050912
  Receipt Date: 20050901
  Transmission Date: 20060218
  Serious: Yes (Death)
  Sender: FDA-Public Use
  Company Number: MEDI-0002743

PATIENT
  Age: 4 Month
  Sex: Female

DRUGS (12)
  1. SYNAGIS [Suspect]
     Indication: ANTIVIRAL PROPHYLAXIS
     Dosage: 105 MG, 1 IN 30 D, INTRAVENOUS
     Route: 042
     Dates: start: 20050110, end: 20050110
  2. HYDROCORTISONE [Concomitant]
  3. RANITIDINE [Concomitant]
  4. AMBISON (AMPHOTERICIN B) [Concomitant]
  5. TAZOCIN (PIPERACILLIN SODIUM, TAZOBACTAM SODIUM) [Concomitant]
  6. METRONIDAZOLE [Concomitant]
  7. MEROPENEM (MEROPENEM) [Concomitant]
  8. GRANULOCYTE COLONY STIMULATING FACTOR (GRANULOCYTE COLONY STIMULATING [Concomitant]
  9. DAUNORUBICIN (DAUNORUBICIN [Concomitant]
  10. ETOPOSIDE [Concomitant]
  11. ARABINOSIDE [Concomitant]
  12. CYTOSINE [Concomitant]

REACTIONS (3)
  - BRONCHOPNEUMONIA [None]
  - MULTI-ORGAN FAILURE [None]
  - SEPSIS [None]
